FAERS Safety Report 16170323 (Version 1)
Quarter: 2019Q2

REPORT INFORMATION
  Report Type: Spontaneous
  Country: CA (occurrence: CA)
  Receive Date: 20190408
  Receipt Date: 20190408
  Transmission Date: 20190711
  Serious: Yes (Other)
  Sender: FDA-Public Use
  Company Number: CA-TEVA-2019-CA-1034974

PATIENT
  Age: 76 Year
  Sex: Female

DRUGS (33)
  1. HYDROXYCHLOROQUINE [Suspect]
     Active Substance: HYDROXYCHLOROQUINE
     Route: 065
  2. ATIVAN [Concomitant]
     Active Substance: LORAZEPAM
  3. DEXAMETHASONE. [Concomitant]
     Active Substance: DEXAMETHASONE
  4. DILAUDID [Concomitant]
     Active Substance: HYDROMORPHONE HYDROCHLORIDE
  5. VAGIFEM [Concomitant]
     Active Substance: ESTRADIOL
     Route: 065
  6. ORENCIA [Suspect]
     Active Substance: ABATACEPT
     Indication: PRODUCT USED FOR UNKNOWN INDICATION
     Route: 065
  7. CODEINE [Concomitant]
     Active Substance: CODEINE
  8. NORFLEX [Concomitant]
     Active Substance: ORPHENADRINE CITRATE
  9. HUMIRA [Suspect]
     Active Substance: ADALIMUMAB
     Indication: PRODUCT USED FOR UNKNOWN INDICATION
     Route: 058
  10. HYDROXYCHLOROQUINE [Suspect]
     Active Substance: HYDROXYCHLOROQUINE
     Indication: PRODUCT USED FOR UNKNOWN INDICATION
     Dosage: 400 GBQ DAILY;
     Route: 065
  11. ACETAMINOPHEN. [Concomitant]
     Active Substance: ACETAMINOPHEN
  12. DIPHENHYDRAMINE. [Concomitant]
     Active Substance: DIPHENHYDRAMINE
  13. ENABLEX [Concomitant]
     Active Substance: DARIFENACIN HYDROBROMIDE
     Route: 065
  14. OMNARIS [Concomitant]
     Active Substance: CICLESONIDE
     Route: 065
  15. PANTOPRAZOLE SODIUM ANHYDROUS [Concomitant]
     Active Substance: PANTOPRAZOLE SODIUM ANHYDROUS
  16. ENBREL [Suspect]
     Active Substance: ETANERCEPT
     Indication: RHEUMATOID ARTHRITIS
     Route: 065
  17. HYDROMORPHONE [Concomitant]
     Active Substance: HYDROMORPHONE
  18. RITUXAN [Concomitant]
     Active Substance: RITUXIMAB
     Route: 042
  19. METHOTREXATE. [Suspect]
     Active Substance: METHOTREXATE
     Indication: PRODUCT USED FOR UNKNOWN INDICATION
     Dosage: 25 MILLIGRAM DAILY;
     Route: 065
  20. ARAVA [Suspect]
     Active Substance: LEFLUNOMIDE
     Indication: PRODUCT USED FOR UNKNOWN INDICATION
     Dosage: 20 MILLIGRAM DAILY;
     Route: 065
  21. SODIUM AUROTHIOMALATE INJECTION BP [Suspect]
     Active Substance: GOLD SODIUM THIOMALATE
     Indication: PRODUCT USED FOR UNKNOWN INDICATION
     Route: 065
  22. KENALOG [Concomitant]
     Active Substance: TRIAMCINOLONE ACETONIDE
     Route: 014
  23. ACTEMRA [Suspect]
     Active Substance: TOCILIZUMAB
     Indication: PRODUCT USED FOR UNKNOWN INDICATION
     Route: 065
  24. XELJANZ [Suspect]
     Active Substance: TOFACITINIB CITRATE
     Indication: PRODUCT USED FOR UNKNOWN INDICATION
     Route: 065
  25. ANAKINRA [Concomitant]
     Active Substance: ANAKINRA
     Route: 065
  26. RESTASIS [Concomitant]
     Active Substance: CYCLOSPORINE
  27. TRIMETHOPRIM. [Concomitant]
     Active Substance: TRIMETHOPRIM
     Route: 065
  28. DESOXIMETASONE. [Concomitant]
     Active Substance: DESOXIMETASONE
  29. KADIAN [Concomitant]
     Active Substance: MORPHINE SULFATE
     Route: 065
  30. LASIX [Concomitant]
     Active Substance: FUROSEMIDE
  31. LOPERAMIDE [Concomitant]
     Active Substance: LOPERAMIDE
  32. OXYNEO [Concomitant]
     Active Substance: OXYCODONE
     Route: 065
  33. SYNTHROID [Concomitant]
     Active Substance: LEVOTHYROXINE SODIUM

REACTIONS (16)
  - Therapeutic product effect incomplete [Unknown]
  - Fibromyalgia [Unknown]
  - Leukopenia [Unknown]
  - Blood cholesterol increased [Unknown]
  - Drug ineffective [Unknown]
  - Infection [Unknown]
  - Liver function test abnormal [Unknown]
  - Peripheral swelling [Unknown]
  - Pneumonia viral [Unknown]
  - Anaemia [Unknown]
  - Joint swelling [Unknown]
  - Soft tissue disorder [Unknown]
  - Synovitis [Unknown]
  - Arthralgia [Unknown]
  - Arthritis [Unknown]
  - Herpes zoster [Unknown]
